FAERS Safety Report 8247077-3 (Version None)
Quarter: 2012Q1

REPORT INFORMATION
  Report Type: 
  Country: None (occurrence: None)
  Receive Date: 20120330
  Receipt Date: 20120319
  Transmission Date: 20120608
  Serious: Yes (Other)
  Sender: FDA-Public Use
  Company Number: FR-ROCHE-1050195

PATIENT
  Age: 54 Year
  Sex: Male

DRUGS (2)
  1. CETUXIMAB [Suspect]
     Indication: PANCREATIC CARCINOMA
  2. HERCEPTIN [Suspect]
     Indication: PANCREATIC CARCINOMA

REACTIONS (1)
  - ULCERATIVE KERATITIS [None]
